FAERS Safety Report 7388946-6 (Version None)
Quarter: 2011Q2

REPORT INFORMATION
  Report Type: 
  Country: None (occurrence: None)
  Receive Date: 20110401
  Receipt Date: 20110328
  Transmission Date: 20111010
  Serious: Yes (Other)
  Sender: FDA-Public Use
  Company Number: US-PFIZER INC-2011032348

PATIENT
  Sex: Female

DRUGS (7)
  1. MULTI-VITAMINS [Concomitant]
     Dosage: UNK
  2. XALATAN [Suspect]
     Indication: GLAUCOMA
     Dosage: 1 GTT, AT BEDTIME IN BOTH EYES
     Dates: start: 20081006, end: 20101004
  3. PRAVACHOL [Concomitant]
     Indication: BLOOD CHOLESTEROL INCREASED
     Dosage: UNK
     Dates: start: 20071101, end: 20100501
  4. PRAVASTATIN [Concomitant]
     Dosage: UNK
  5. DIAZIDE [Concomitant]
     Dosage: UNK
     Dates: start: 20100501
  6. ACETYLSALICYLIC ACID [Concomitant]
     Dosage: 325 MG, (1/2) UNK
  7. CALCIUM [Concomitant]
     Dosage: UNK

REACTIONS (3)
  - THIRST [None]
  - MENIERE'S DISEASE [None]
  - DRY MOUTH [None]
